FAERS Safety Report 25603873 (Version 1)
Quarter: 2025Q3

REPORT INFORMATION
  Report Type: Spontaneous
  Country: CA (occurrence: CA)
  Receive Date: 20250725
  Receipt Date: 20250725
  Transmission Date: 20251020
  Serious: Yes (Death, Life-Threatening, Hospitalization, Disabling, Congenital Anomaly, Other)
  Sender: Haleon PLC
  Company Number: CA-HALEON-2254063

PATIENT
  Age: 43 Year
  Sex: Female

DRUGS (69)
  1. DICLOFENAC [Suspect]
     Active Substance: DICLOFENAC
     Indication: Product used for unknown indication
  2. DICLOFENAC [Suspect]
     Active Substance: DICLOFENAC
     Indication: Rheumatoid arthritis
  3. DICLOFENAC [Suspect]
     Active Substance: DICLOFENAC
  4. DICLOFENAC [Suspect]
     Active Substance: DICLOFENAC
  5. DICLOFENAC [Suspect]
     Active Substance: DICLOFENAC
  6. DICLOFENAC [Suspect]
     Active Substance: DICLOFENAC
  7. DICLOFENAC [Suspect]
     Active Substance: DICLOFENAC
  8. DICLOFENAC [Suspect]
     Active Substance: DICLOFENAC
  9. DICLOFENAC [Suspect]
     Active Substance: DICLOFENAC
  10. DICLOFENAC [Suspect]
     Active Substance: DICLOFENAC
  11. DICLOFENAC [Suspect]
     Active Substance: DICLOFENAC
  12. DICLOFENAC [Suspect]
     Active Substance: DICLOFENAC
  13. DICLOFENAC [Suspect]
     Active Substance: DICLOFENAC
  14. DICLOFENAC [Suspect]
     Active Substance: DICLOFENAC
  15. DICLOFENAC [Suspect]
     Active Substance: DICLOFENAC
  16. CALCIUM\VITAMIN D [Suspect]
     Active Substance: CALCIUM\VITAMIN D
     Indication: Product used for unknown indication
  17. ERELZI [Suspect]
     Active Substance: ETANERCEPT-SZZS
     Indication: Rheumatoid arthritis
  18. ERELZI [Suspect]
     Active Substance: ETANERCEPT-SZZS
  19. ERELZI [Suspect]
     Active Substance: ETANERCEPT-SZZS
  20. ERELZI [Suspect]
     Active Substance: ETANERCEPT-SZZS
  21. ERELZI [Suspect]
     Active Substance: ETANERCEPT-SZZS
  22. QUETIAPINE FUMARATE [Suspect]
     Active Substance: QUETIAPINE FUMARATE
     Indication: Product used for unknown indication
  23. QUETIAPINE FUMARATE [Suspect]
     Active Substance: QUETIAPINE FUMARATE
     Route: 048
  24. MYCOPHENOLATE MOFETIL [Suspect]
     Active Substance: MYCOPHENOLATE MOFETIL
     Indication: Rheumatoid arthritis
  25. MYCOPHENOLATE MOFETIL [Suspect]
     Active Substance: MYCOPHENOLATE MOFETIL
  26. VOLTAREN [Suspect]
     Active Substance: DICLOFENAC SODIUM
     Indication: Rheumatoid arthritis
  27. VOLTAREN [Suspect]
     Active Substance: DICLOFENAC SODIUM
  28. VOLTAREN [Suspect]
     Active Substance: DICLOFENAC SODIUM
     Route: 048
  29. VOLTAREN [Suspect]
     Active Substance: DICLOFENAC SODIUM
     Route: 048
  30. VOLTAREN [Suspect]
     Active Substance: DICLOFENAC SODIUM
     Route: 048
  31. VOLTAREN [Suspect]
     Active Substance: DICLOFENAC SODIUM
     Route: 048
  32. AIMOVIG [Suspect]
     Active Substance: ERENUMAB-AOOE
     Indication: Migraine
  33. ALENDRONATE SODIUM [Suspect]
     Active Substance: ALENDRONATE SODIUM
     Indication: Rheumatoid arthritis
  34. ALENDRONATE SODIUM [Suspect]
     Active Substance: ALENDRONATE SODIUM
  35. ALENDRONATE SODIUM [Suspect]
     Active Substance: ALENDRONATE SODIUM
  36. ALENDRONATE SODIUM [Suspect]
     Active Substance: ALENDRONATE SODIUM
     Dosage: ROA: ORAL
  37. ALENDRONATE SODIUM [Suspect]
     Active Substance: ALENDRONATE SODIUM
  38. ALENDRONATE SODIUM [Suspect]
     Active Substance: ALENDRONATE SODIUM
  39. ALENDRONATE SODIUM [Suspect]
     Active Substance: ALENDRONATE SODIUM
  40. ALENDRONATE SODIUM [Suspect]
     Active Substance: ALENDRONATE SODIUM
  41. ALENDRONATE SODIUM [Suspect]
     Active Substance: ALENDRONATE SODIUM
  42. COSENTYX [Suspect]
     Active Substance: SECUKINUMAB
     Indication: Rheumatoid arthritis
     Route: 048
  43. COSENTYX [Suspect]
     Active Substance: SECUKINUMAB
     Indication: Psoriatic arthropathy
  44. COSENTYX [Suspect]
     Active Substance: SECUKINUMAB
  45. COSENTYX [Suspect]
     Active Substance: SECUKINUMAB
  46. HYRIMOZ [Suspect]
     Active Substance: ADALIMUMAB-ADAZ
     Indication: Rheumatoid arthritis
  47. HYRIMOZ [Suspect]
     Active Substance: ADALIMUMAB-ADAZ
     Indication: Psoriatic arthropathy
  48. HYRIMOZ [Suspect]
     Active Substance: ADALIMUMAB-ADAZ
  49. HYRIMOZ [Suspect]
     Active Substance: ADALIMUMAB-ADAZ
  50. HYRIMOZ [Suspect]
     Active Substance: ADALIMUMAB-ADAZ
  51. HYRIMOZ [Suspect]
     Active Substance: ADALIMUMAB-ADAZ
  52. OXYCODONE [Suspect]
     Active Substance: OXYCODONE
     Indication: Product used for unknown indication
  53. OXYCODONE [Suspect]
     Active Substance: OXYCODONE
     Route: 042
  54. OXYCODONE [Suspect]
     Active Substance: OXYCODONE
  55. RITUXIMAB [Suspect]
     Active Substance: RITUXIMAB
     Indication: Rheumatoid arthritis
  56. RITUXIMAB [Suspect]
     Active Substance: RITUXIMAB
  57. RITUXIMAB [Suspect]
     Active Substance: RITUXIMAB
  58. RITUXIMAB [Suspect]
     Active Substance: RITUXIMAB
  59. RITUXIMAB [Suspect]
     Active Substance: RITUXIMAB
  60. RITUXIMAB [Suspect]
     Active Substance: RITUXIMAB
  61. RITUXIMAB [Suspect]
     Active Substance: RITUXIMAB
  62. RITUXIMAB [Suspect]
     Active Substance: RITUXIMAB
  63. RITUXIMAB [Suspect]
     Active Substance: RITUXIMAB
  64. LEFLUNOMIDE [Suspect]
     Active Substance: LEFLUNOMIDE
     Indication: Rheumatoid arthritis
  65. LEFLUNOMIDE [Suspect]
     Active Substance: LEFLUNOMIDE
  66. LEFLUNOMIDE [Suspect]
     Active Substance: LEFLUNOMIDE
     Route: 048
  67. LEFLUNOMIDE [Suspect]
     Active Substance: LEFLUNOMIDE
     Route: 048
  68. LEFLUNOMIDE [Suspect]
     Active Substance: LEFLUNOMIDE
     Route: 048
  69. LEFLUNOMIDE [Suspect]
     Active Substance: LEFLUNOMIDE
     Route: 048

REACTIONS (48)
  - Pulmonary fibrosis [Fatal]
  - Lupus vulgaris [Fatal]
  - Pruritus [Fatal]
  - Laryngitis [Fatal]
  - Pyrexia [Fatal]
  - Red blood cell sedimentation rate increased [Fatal]
  - Lower limb fracture [Fatal]
  - Psoriatic arthropathy [Fatal]
  - Mobility decreased [Fatal]
  - Musculoskeletal stiffness [Fatal]
  - Injury [Fatal]
  - Exposure during pregnancy [Fatal]
  - Intentional product use issue [Fatal]
  - Irritable bowel syndrome [Fatal]
  - Product use in unapproved indication [Fatal]
  - Lupus-like syndrome [Fatal]
  - Prescribed underdose [Fatal]
  - Rash [Fatal]
  - Oedema [Fatal]
  - Joint swelling [Fatal]
  - Liver injury [Fatal]
  - Liver function test increased [Fatal]
  - Muscle injury [Fatal]
  - Oedema peripheral [Fatal]
  - Infusion related reaction [Fatal]
  - Osteoarthritis [Fatal]
  - Pneumonia [Fatal]
  - Live birth [Fatal]
  - Joint dislocation [Fatal]
  - Prescribed overdose [Fatal]
  - Psoriasis [Fatal]
  - Muscular weakness [Fatal]
  - Rheumatic fever [Fatal]
  - Off label use [Fatal]
  - Peripheral swelling [Fatal]
  - Pemphigus [Fatal]
  - Osteoporosis [Fatal]
  - Pericarditis [Fatal]
  - Pain [Fatal]
  - Joint stiffness [Fatal]
  - Product use issue [Fatal]
  - Joint range of motion decreased [Fatal]
  - Nasopharyngitis [Fatal]
  - Maternal exposure during pregnancy [Fatal]
  - Retinitis [Fatal]
  - Memory impairment [Fatal]
  - Nausea [Fatal]
  - Pain in extremity [Fatal]
